FAERS Safety Report 7145043-2 (Version None)
Quarter: 2010Q4

REPORT INFORMATION
  Report Type: 
  Country: None (occurrence: None)
  Receive Date: 20101208
  Receipt Date: 20101124
  Transmission Date: 20110411
  Serious: Yes (Other)
  Sender: FDA-Public Use
  Company Number: PHHY2010US80138

PATIENT
  Sex: Female

DRUGS (9)
  1. GILENYA [Suspect]
     Indication: RELAPSING-REMITTING MULTIPLE SCLEROSIS
     Dosage: 0.5 MG, QD
     Route: 048
     Dates: start: 20101115
  2. BUSPAR [Concomitant]
     Dosage: UNK
  3. CELEXA [Concomitant]
     Dosage: UNK
  4. VITAMIN B-12 [Concomitant]
     Dosage: UNK
  5. CLONOPIN [Concomitant]
     Dosage: UNK
  6. LAMICTAL [Concomitant]
     Dosage: UNK
  7. MIRALAX [Concomitant]
     Dosage: UNK
  8. PROVIGIL [Concomitant]
     Dosage: UNK
  9. ZANAFLEX [Concomitant]
     Dosage: UNK

REACTIONS (5)
  - BLOOD PRESSURE INCREASED [None]
  - FLUID RETENTION [None]
  - LYMPHOCYTE COUNT DECREASED [None]
  - NEUTROPHIL COUNT INCREASED [None]
  - WEIGHT INCREASED [None]
